FAERS Safety Report 16945618 (Version 1)
Quarter: 2019Q4

REPORT INFORMATION
  Report Type: Spontaneous
  Country: US (occurrence: US)
  Receive Date: 20191021
  Receipt Date: 20191021
  Transmission Date: 20200122
  Serious: No
  Sender: FDA-Public Use
  Company Number: None

PATIENT
  Age: 67 Year

DRUGS (1)
  1. PROAMATINE [Suspect]
     Active Substance: MIDODRINE HYDROCHLORIDE

REACTIONS (3)
  - Treatment failure [None]
  - Fall [None]
  - Dizziness [None]
